FAERS Safety Report 21741752 (Version 1)
Quarter: 2022Q4

REPORT INFORMATION
  Report Type: Spontaneous
  Country: JP (occurrence: JP)
  Receive Date: 20221216
  Receipt Date: 20221216
  Transmission Date: 20230113
  Serious: Yes (Other)
  Sender: FDA-Public Use
  Company Number: JP-PFIZER INC-PV202200123947

PATIENT
  Age: 72 Year
  Sex: Male

DRUGS (1)
  1. ESTRAMUSTINE [Suspect]
     Active Substance: ESTRAMUSTINE
     Dosage: UNK
     Route: 048

REACTIONS (2)
  - Erythema multiforme [Unknown]
  - Erythema annulare [Unknown]
